FAERS Safety Report 8549240 (Version 8)
Quarter: 2013Q2

REPORT INFORMATION
  Report Type: Spontaneous
  Country: US (occurrence: US)
  Receive Date: 20120507
  Receipt Date: 20130614
  Transmission Date: 20140414
  Serious: Yes (Hospitalization, Other)
  Sender: FDA-Public Use
  Company Number: US-JNJFOC-20120413887

PATIENT
  Age: 74 Year
  Sex: Female
  Weight: 53.98 kg

DRUGS (45)
  1. NAPROSYN [Concomitant]
     Indication: PRODUCT USED FOR UNKNOWN INDICATION
     Route: 065
  2. CHOLESTYRAMINE [Concomitant]
     Indication: PRODUCT USED FOR UNKNOWN INDICATION
     Route: 065
  3. WELCHOL [Concomitant]
     Indication: PRODUCT USED FOR UNKNOWN INDICATION
     Route: 048
  4. WELCHOL [Concomitant]
     Indication: PRODUCT USED FOR UNKNOWN INDICATION
     Route: 048
  5. PLAVIX [Concomitant]
     Indication: PRODUCT USED FOR UNKNOWN INDICATION
     Route: 065
  6. THYROID REPLACMENT [Concomitant]
     Indication: HYPOTHYROIDISM
     Route: 065
  7. LISINOPRIL [Concomitant]
     Indication: PRODUCT USED FOR UNKNOWN INDICATION
     Route: 065
  8. IBUPROFEN [Concomitant]
  9. UNSPECIFIED NEBULIZER [Concomitant]
     Route: 045
  10. LOVENOX [Concomitant]
     Route: 058
     Dates: start: 20110624
  11. ONDANSETRON [Concomitant]
     Indication: VOMITING
     Route: 048
     Dates: start: 20110625, end: 20110626
  12. ONDANSETRON [Concomitant]
     Indication: NAUSEA
     Route: 048
     Dates: start: 20110625, end: 20110626
  13. DOCUSATE SODIUM [Concomitant]
     Route: 048
     Dates: start: 20110626, end: 20110626
  14. HYDROCODONE - ACETAMINOPHEN [Concomitant]
     Indication: PAIN
     Dosage: 5-500 MG
     Route: 048
     Dates: start: 20110624, end: 20110626
  15. LEVAQUIN [Suspect]
     Indication: LOBAR PNEUMONIA
     Dosage: PRESCRIBED FOR 10 DAYS
     Route: 048
     Dates: start: 20110624, end: 20110701
  16. XANAX [Concomitant]
     Indication: DEPRESSION
     Route: 048
  17. XANAX [Concomitant]
     Indication: ANXIETY
     Route: 048
  18. XANAX [Concomitant]
     Indication: NEUROPATHY PERIPHERAL
     Route: 048
  19. LEVOTHYROXINE SODIUM [Concomitant]
     Indication: HYPOTHYROIDISM
     Dosage: EVERY MORNING BEFORE MEALS
     Route: 048
  20. LORTAB [Concomitant]
     Indication: PAIN
     Dosage: AS NEEDED (HALF PILL)
     Route: 048
  21. LORTAB [Concomitant]
     Indication: PAIN
     Dosage: AS NEEDED (HALF PILL)
     Route: 048
  22. NEXIUM [Concomitant]
     Indication: GASTRIC DISORDER
     Route: 048
     Dates: start: 20110624
  23. CRESTOR [Concomitant]
     Indication: CARDIAC DISORDER
     Route: 048
     Dates: start: 20110624
  24. NITROGLYCERINE [Concomitant]
     Indication: CARDIAC DISORDER
     Route: 061
  25. NITROSTAT [Concomitant]
     Indication: CARDIAC DISORDER
     Route: 048
  26. ZOLOFT [Concomitant]
     Indication: DEPRESSION
     Dosage: 2 TABLETS EVERY NIGHT AT BEDTIME
     Route: 048
  27. LOPRESSOR [Concomitant]
     Indication: CARDIAC DISORDER
     Route: 048
  28. LACTULOSE [Concomitant]
     Indication: CONSTIPATION
     Dosage: 10 G/15 ML
     Route: 065
  29. BACTROBAN [Concomitant]
     Indication: LACERATION
     Route: 061
  30. PREMARIN [Concomitant]
     Indication: DRY SKIN
     Route: 067
  31. ALBUTEROL SULPHATE [Concomitant]
     Indication: DYSPNOEA
     Route: 055
     Dates: start: 20110624
  32. MULTIPLE  VITAMIN [Concomitant]
     Route: 065
  33. OS-CAL + D [Concomitant]
     Route: 065
  34. FISH OIL [Concomitant]
     Route: 048
  35. B 12 [Concomitant]
     Route: 065
  36. VITAMIN D3 [Concomitant]
     Dosage: 400 UNITS
     Route: 065
  37. ASPIRIN [Concomitant]
     Route: 065
  38. TYLENOL [Concomitant]
     Indication: PRODUCT USED FOR UNKNOWN INDICATION
     Route: 048
     Dates: start: 20110624, end: 20110626
  39. SALINE NOSE SPRAY [Concomitant]
     Indication: PRODUCT USED FOR UNKNOWN INDICATION
     Route: 045
  40. REFRESH EYE DROPS [Concomitant]
     Indication: PRODUCT USED FOR UNKNOWN INDICATION
     Route: 065
  41. CENTRUM SILVER [Concomitant]
     Indication: PRODUCT USED FOR UNKNOWN INDICATION
     Route: 065
  42. TUMS [Concomitant]
     Indication: PRODUCT USED FOR UNKNOWN INDICATION
     Route: 065
  43. LUTEIN [Concomitant]
     Indication: PRODUCT USED FOR UNKNOWN INDICATION
     Route: 065
  44. DIFLUCAN [Concomitant]
     Indication: PRODUCT USED FOR UNKNOWN INDICATION
     Route: 065
  45. AN UNKNOWN MEDICATION [Concomitant]
     Indication: PRODUCT USED FOR UNKNOWN INDICATION
     Route: 065

REACTIONS (17)
  - Bursitis [Not Recovered/Not Resolved]
  - Condition aggravated [Not Recovered/Not Resolved]
  - Tendonitis [Not Recovered/Not Resolved]
  - Arthritis [Not Recovered/Not Resolved]
  - Peripheral coldness [Not Recovered/Not Resolved]
  - Carpal tunnel syndrome [Not Recovered/Not Resolved]
  - Fatigue [Unknown]
  - Cyanosis [Not Recovered/Not Resolved]
  - Balance disorder [Not Recovered/Not Resolved]
  - Feeling abnormal [Not Recovered/Not Resolved]
  - Tendon pain [Not Recovered/Not Resolved]
  - Back pain [Not Recovered/Not Resolved]
  - Local swelling [Not Recovered/Not Resolved]
  - Gait disturbance [Not Recovered/Not Resolved]
  - Tendon rupture [Not Recovered/Not Resolved]
  - Nervous system disorder [Unknown]
  - Heart rate irregular [Unknown]
